FAERS Safety Report 18365890 (Version 1)
Quarter: 2020Q4

REPORT INFORMATION
  Report Type: Spontaneous
  Country: US (occurrence: US)
  Receive Date: 20201009
  Receipt Date: 20201009
  Transmission Date: 20210114
  Serious: Yes (Other)
  Sender: FDA-Public Use
  Company Number: None

PATIENT
  Age: 61 Year
  Sex: Female

DRUGS (1)
  1. ESTRADIOL. [Suspect]
     Active Substance: ESTRADIOL
     Dosage: ?          OTHER FREQUENCY:TWICE WEEKLY PATCH;?
     Route: 062

REACTIONS (4)
  - Breast tenderness [None]
  - Urinary incontinence [None]
  - Product substitution issue [None]
  - Vaginal haemorrhage [None]

NARRATIVE: CASE EVENT DATE: 20200730
